FAERS Safety Report 9049399 (Version 2)
Quarter: 2013Q1

REPORT INFORMATION
  Report Type: Spontaneous
  Country: US (occurrence: US)
  Receive Date: 20130205
  Receipt Date: 20130315
  Transmission Date: 20140127
  Serious: No
  Sender: FDA-Public Use
  Company Number: US-PFIZER INC-2013043697

PATIENT
  Age: 57 Year
  Sex: Female
  Weight: 58.05 kg

DRUGS (2)
  1. NEURONTIN [Suspect]
     Indication: NERVE INJURY
     Dosage: 400 MG, 3X/DAY
     Route: 048
     Dates: start: 2011
  2. MOBIC [Concomitant]
     Dosage: UNK

REACTIONS (4)
  - Drug ineffective [Unknown]
  - Pain [Unknown]
  - Limb discomfort [Unknown]
  - Insomnia [Unknown]
